FAERS Safety Report 25364749 (Version 1)
Quarter: 2025Q2

REPORT INFORMATION
  Report Type: Spontaneous
  Country: US (occurrence: None)
  Receive Date: 20250527
  Receipt Date: 20250527
  Transmission Date: 20250717
  Serious: Yes (Hospitalization)
  Sender: INCYTE
  Company Number: US-INCYTE CORPORATION-2025IN005671

PATIENT
  Age: 76 Year
  Weight: 86.5 kg

DRUGS (1)
  1. JAKAFI [Suspect]
     Active Substance: RUXOLITINIB
     Indication: Thrombocytopenia
     Dosage: 3 X 5 MG TABLETS EVERY MORNING AND 2 X 5 MG TABLETS IN THE EVENING

REACTIONS (3)
  - Fall [Unknown]
  - Haematoma [Unknown]
  - Off label use [Unknown]
